FAERS Safety Report 6568520-1 (Version None)
Quarter: 2010Q1

REPORT INFORMATION
  Report Type: 
  Country: None (occurrence: None)
  Receive Date: 20100203
  Receipt Date: 20100128
  Transmission Date: 20100710
  Serious: Yes (Other)
  Sender: FDA-Public Use
  Company Number: US-BRISTOL-MYERS SQUIBB COMPANY-14955850

PATIENT
  Age: 58 Year
  Sex: Female

DRUGS (1)
  1. MAXIPIME [Suspect]
     Indication: CELLULITIS
     Dates: start: 20100119

REACTIONS (2)
  - BLOOD BILIRUBIN INCREASED [None]
  - CHOLECYSTITIS [None]
